FAERS Safety Report 21770773 (Version 1)
Quarter: 2022Q4

REPORT INFORMATION
  Report Type: Spontaneous
  Country: US (occurrence: US)
  Receive Date: 20221223
  Receipt Date: 20221223
  Transmission Date: 20230112
  Serious: Yes (Other)
  Sender: FDA-Public Use
  Company Number: US-PADAGIS-2022PAD01230

PATIENT

DRUGS (10)
  1. BUDESONIDE [Suspect]
     Active Substance: BUDESONIDE
     Indication: Colitis microscopic
     Dosage: UNK
     Route: 065
  2. BUDESONIDE [Suspect]
     Active Substance: BUDESONIDE
     Indication: Colitis microscopic
     Dosage: 3 MG, QD
     Route: 065
  3. INFLIXIMAB [Suspect]
     Active Substance: INFLIXIMAB
     Indication: Colitis microscopic
     Dosage: UNK
     Route: 065
  4. INFLIXIMAB [Suspect]
     Active Substance: INFLIXIMAB
     Indication: Colitis microscopic
  5. CHOLESTYRAMINE [Suspect]
     Active Substance: CHOLESTYRAMINE
     Indication: Colitis microscopic
     Dosage: UNK
     Route: 065
  6. CHOLESTYRAMINE [Suspect]
     Active Substance: CHOLESTYRAMINE
     Indication: Colitis microscopic
  7. LOPERAMIDE [Suspect]
     Active Substance: LOPERAMIDE
     Indication: Colitis microscopic
     Dosage: UNK
     Route: 065
  8. LOPERAMIDE [Suspect]
     Active Substance: LOPERAMIDE
     Indication: Colitis microscopic
  9. ATROPINE SULFATE\DIPHENOXYLATE [Suspect]
     Active Substance: ATROPINE SULFATE\DIPHENOXYLATE
     Indication: Colitis microscopic
     Dosage: UNK
     Route: 065
  10. ATROPINE SULFATE\DIPHENOXYLATE [Suspect]
     Active Substance: ATROPINE SULFATE\DIPHENOXYLATE
     Indication: Colitis microscopic

REACTIONS (2)
  - Treatment failure [Unknown]
  - Product use in unapproved indication [Unknown]
